FAERS Safety Report 7554796-0 (Version None)
Quarter: 2011Q2

REPORT INFORMATION
  Report Type: 
  Country: None (occurrence: None)
  Receive Date: 20110617
  Receipt Date: 20110613
  Transmission Date: 20111010
  Serious: Yes (Hospitalization, Other)
  Sender: FDA-Public Use
  Company Number: US-BRISTOL-MYERS SQUIBB COMPANY-14446389

PATIENT
  Age: 80 Year
  Sex: Female

DRUGS (7)
  1. CARVEDILOL [Concomitant]
     Route: 048
     Dates: start: 20080520
  2. POTASSIUM CHLORIDE [Concomitant]
     Dates: start: 20080318
  3. WARFARIN SODIUM [Suspect]
     Indication: THROMBOSIS PROPHYLAXIS
     Dosage: DRUG INTERRUPTED ON 10-DEC-2008. RESUMED 16-DEC-2008
     Route: 048
     Dates: start: 20080320
  4. PLACEBO [Suspect]
     Indication: THROMBOSIS PROPHYLAXIS
     Dosage: WITH APIXABAN INTERRUPTED ON 14DEC08. WITH WARFARIN INTERRUPTED ON 10DEC08. RESUMED 16-DEC-2008
     Route: 048
     Dates: start: 20080320, end: 20081201
  5. FUROSEMIDE [Concomitant]
     Route: 048
     Dates: start: 20080318
  6. VITAMINS + MINERALS [Concomitant]
     Dosage: TAB
     Route: 048
  7. MOEXIPRIL HCL [Concomitant]
     Route: 048
     Dates: start: 20051122

REACTIONS (3)
  - FALL [None]
  - HAEMATOMA [None]
  - CELLULITIS [None]
